FAERS Safety Report 14683025 (Version 2)
Quarter: 2018Q2

REPORT INFORMATION
  Report Type: Spontaneous
  Country: CA (occurrence: CA)
  Receive Date: 20180327
  Receipt Date: 20180422
  Transmission Date: 20180711
  Serious: Yes (Other)
  Sender: FDA-Public Use
  Company Number: CA-APOTEX-2018AP008552

PATIENT
  Age: 35 Year
  Sex: Female

DRUGS (3)
  1. APO-CABERGOLINE [Suspect]
     Active Substance: CABERGOLINE
     Indication: PITUITARY-DEPENDENT CUSHING^S SYNDROME
     Dosage: 2 MG, TWICE A WEEK
     Route: 048
     Dates: start: 201706
  2. KETOCONAZOLE. [Suspect]
     Active Substance: KETOCONAZOLE
     Indication: OFF LABEL USE
     Dosage: 300 MG, UNK
     Route: 048
  3. KETOCONAZOLE. [Suspect]
     Active Substance: KETOCONAZOLE
     Dosage: 200 MG, Q.H.S.
     Route: 048

REACTIONS (1)
  - Sunburn [Not Recovered/Not Resolved]

NARRATIVE: CASE EVENT DATE: 20180310
